FAERS Safety Report 8403677-9 (Version None)
Quarter: 2012Q2

REPORT INFORMATION
  Report Type: 
  Country: None (occurrence: None)
  Receive Date: 20120601
  Receipt Date: 20110822
  Transmission Date: 20120825
  Serious: No
  Sender: FDA-Public Use
  Company Number: US-NOVEN-11US003011

PATIENT
  Sex: Male
  Weight: 25.397 kg

DRUGS (2)
  1. ZYRTEC [Concomitant]
     Indication: SEASONAL ALLERGY
     Dosage: UNK
     Route: 048
  2. DAYTRANA [Suspect]
     Indication: ATTENTION DEFICIT/HYPERACTIVITY DISORDER
     Dosage: 10 MG, QD
     Route: 062

REACTIONS (2)
  - DECREASED APPETITE [None]
  - APPLICATION SITE PRURITUS [None]
